FAERS Safety Report 11649702 (Version 4)
Quarter: 2015Q4

REPORT INFORMATION
  Report Type: Spontaneous
  Country: JP (occurrence: JP)
  Receive Date: 20151021
  Receipt Date: 20151221
  Transmission Date: 20160304
  Serious: Yes (Other)
  Sender: FDA-Public Use
  Company Number: JP-PFIZER INC-2015352519

PATIENT
  Age: 81 Year
  Sex: Female
  Weight: 57 kg

DRUGS (14)
  1. SOLANAX [Suspect]
     Active Substance: ALPRAZOLAM
     Indication: INSOMNIA
     Dosage: 0.4 MG, 3X/DAY
     Route: 048
     Dates: start: 20150831, end: 20151009
  2. CANDESARTAN CILEXETIL. [Concomitant]
     Active Substance: CANDESARTAN CILEXETIL
     Dosage: 8 MG, 1X/DAY
     Route: 048
  3. MAGLAX [Concomitant]
     Active Substance: MAGNESIUM OXIDE
     Dosage: 660 MG, 1X/DAY AT BEDTIME
     Route: 048
  4. SOLANAX [Suspect]
     Active Substance: ALPRAZOLAM
     Indication: ANXIETY
  5. KERLONG [Concomitant]
     Active Substance: BETAXOLOL HYDROCHLORIDE
     Dosage: 2.5 MG, 1X/DAY AT BEDTIME
     Route: 048
  6. ATELEC [Concomitant]
     Active Substance: CILNIDIPINE
     Dosage: 10 MG, 1X/DAY
     Route: 048
  7. ALINAMIN F [Concomitant]
     Active Substance: FURSULTIAMINE HYDROCHLORIDE
     Dosage: 25 MG, 3X/DAY
     Route: 048
  8. LOXONIN [Concomitant]
     Active Substance: LOXOPROFEN SODIUM
     Dosage: 100 MG, 1X/DAY
     Route: 061
  9. SUMILU [Concomitant]
     Active Substance: FELBINAC
     Dosage: 40 G APPLIED ON AFFACTED AREA
     Route: 061
  10. EDIROL [Concomitant]
     Active Substance: ELDECALCITOL
     Dosage: 0.75 ?G, 1X/DAY
     Route: 048
  11. ONETRAM [Concomitant]
     Active Substance: TRAMADOL HYDROCHLORIDE
     Dosage: 200 MG, 1X/DAY
     Route: 048
     Dates: start: 20150914, end: 20151015
  12. ONETRAM [Concomitant]
     Active Substance: TRAMADOL HYDROCHLORIDE
     Indication: BACK PAIN
     Dosage: 100 MG, 1X/DAY
     Route: 048
     Dates: start: 20150828, end: 20150913
  13. VOLTAREN [Concomitant]
     Active Substance: DICLOFENAC SODIUM
     Indication: PAIN
     Dosage: 50 MG, AS NEEDED
     Route: 061
  14. BONOTEO [Concomitant]
     Active Substance: MINODRONIC ACID
     Dosage: 1 MG, 1X/DAY
     Route: 048

REACTIONS (7)
  - Delirium [Recovered/Resolved]
  - Hyperhidrosis [Recovered/Resolved]
  - Nightmare [Recovered/Resolved]
  - Hypoaesthesia [Unknown]
  - Drug withdrawal syndrome [Recovered/Resolved]
  - Dizziness [Recovered/Resolved]
  - Night sweats [Unknown]

NARRATIVE: CASE EVENT DATE: 201510
